FAERS Safety Report 22613640 (Version 1)
Quarter: 2023Q2

REPORT INFORMATION
  Report Type: Spontaneous
  Country: US (occurrence: US)
  Receive Date: 20230619
  Receipt Date: 20230619
  Transmission Date: 20230722
  Serious: Yes (Other)
  Sender: FDA-Public Use
  Company Number: US-BRISTOL-MYERS SQUIBB COMPANY-2023-084810

PATIENT
  Sex: Male

DRUGS (7)
  1. YERVOY [Suspect]
     Active Substance: IPILIMUMAB
     Indication: Product used for unknown indication
     Dosage: IN A BLINDED TRIAL WITH NIVO
     Dates: start: 201402
  2. YERVOY [Suspect]
     Active Substance: IPILIMUMAB
     Dosage: IPI/NIVO X 4 DOSES
     Dates: start: 201505, end: 201506
  3. YERVOY [Suspect]
     Active Substance: IPILIMUMAB
     Dosage: IPI/NIVO X 4 DOSES
     Dates: start: 201711, end: 201801
  4. OPDIVO [Suspect]
     Active Substance: NIVOLUMAB
     Indication: Product used for unknown indication
     Dosage: IN A BLINDED TRIAL WITH IPI
     Dates: start: 201402
  5. OPDIVO [Suspect]
     Active Substance: NIVOLUMAB
     Dosage: IPI/NIVO X 4 DOSES
     Dates: start: 201505
  6. OPDIVO [Suspect]
     Active Substance: NIVOLUMAB
     Dosage: IPI 3/ NIVO 1 X 4 DOSES
     Dates: start: 201711, end: 201801
  7. OPDIVO [Suspect]
     Active Substance: NIVOLUMAB
     Dosage: NIVO MAINTENANCE
     Dates: start: 201804, end: 202210

REACTIONS (1)
  - Malignant neoplasm progression [Unknown]

NARRATIVE: CASE EVENT DATE: 20150501
